FAERS Safety Report 5183381-3 (Version None)
Quarter: 2006Q4

REPORT INFORMATION
  Report Type: 
  Country: None (occurrence: None)
  Receive Date: 20061220
  Receipt Date: 20060110
  Transmission Date: 20070319
  Serious: No
  Sender: FDA-Public Use
  Company Number: CHPA2005US08646

PATIENT
  Age: 37 Year
  Sex: Male
  Weight: 81.6 kg

DRUGS (3)
  1. NICOTINE [Suspect]
     Indication: SMOKING CESSATION THERAPY
     Dosage: 21MG PER DAY
     Route: 062
     Dates: start: 20051229
  2. NICORETTE [Suspect]
     Indication: SMOKING CESSATION THERAPY
     Route: 048
  3. ANTIDEPRESSANTS [Concomitant]

REACTIONS (2)
  - MEDICATION ERROR [None]
  - VISUAL DISTURBANCE [None]
